FAERS Safety Report 17842647 (Version 4)
Quarter: 2020Q3

REPORT INFORMATION
  Report Type: Spontaneous
  Country: JP (occurrence: JP)
  Receive Date: 20200529
  Receipt Date: 20200730
  Transmission Date: 20201103
  Serious: Yes (Other)
  Sender: FDA-Public Use
  Company Number: JP-JNJFOC-20200530145

PATIENT
  Age: 90 Year
  Sex: Male
  Weight: 48 kg

DRUGS (4)
  1. REMINYL [Suspect]
     Active Substance: GALANTAMINE
     Indication: DEMENTIA ALZHEIMER^S TYPE
     Dosage: IN THE MORNING AND EVENING
     Route: 048
     Dates: start: 20160623, end: 20200523
  2. TRUSOPT [Concomitant]
     Active Substance: DORZOLAMIDE HYDROCHLORIDE
     Indication: CATARACT
     Route: 065
  3. TAPROS                             /00726902/ [Concomitant]
     Indication: CATARACT
     Route: 065
  4. BRIMONIDINE TARTRATE. [Concomitant]
     Active Substance: BRIMONIDINE TARTRATE
     Indication: CATARACT
     Route: 065

REACTIONS (5)
  - Cardiac failure [Unknown]
  - Pleural effusion [Unknown]
  - Somnolence [Recovering/Resolving]
  - Feeling abnormal [Recovering/Resolving]
  - Loss of consciousness [Recovered/Resolved]

NARRATIVE: CASE EVENT DATE: 20170124
